FAERS Safety Report 7281805-9 (Version None)
Quarter: 2011Q1

REPORT INFORMATION
  Report Type: 
  Country: None (occurrence: None)
  Receive Date: 20110208
  Receipt Date: 20110131
  Transmission Date: 20110831
  Serious: Yes (Other)
  Sender: FDA-Public Use
  Company Number: US-PERRIGO-11US000859

PATIENT
  Sex: Male
  Weight: 88.435 kg

DRUGS (1)
  1. DOXYLAMINE SUCCINATE 25 MG 441 [Suspect]
     Indication: INSOMNIA
     Dosage: 12.5 MG, SINGLE
     Route: 048
     Dates: start: 20110129, end: 20110129

REACTIONS (7)
  - SWOLLEN TONGUE [None]
  - PHARYNGEAL ERYTHEMA [None]
  - HYPERSENSITIVITY [None]
  - PRURITUS [None]
  - PHARYNGEAL OEDEMA [None]
  - TONGUE DISORDER [None]
  - WRONG TECHNIQUE IN DRUG USAGE PROCESS [None]
